FAERS Safety Report 12425046 (Version 3)
Quarter: 2016Q3

REPORT INFORMATION
  Report Type: Spontaneous
  Country: US (occurrence: US)
  Receive Date: 20160601
  Receipt Date: 20160725
  Transmission Date: 20161109
  Serious: No
  Sender: FDA-Public Use
  Company Number: US-PFIZER INC-2016280453

PATIENT
  Age: 87 Year
  Sex: Female
  Weight: 77 kg

DRUGS (1)
  1. PREMARIN [Suspect]
     Active Substance: ESTROGENS, CONJUGATED
     Dosage: UNK

REACTIONS (3)
  - Drug dose omission [Unknown]
  - Hypoacusis [Unknown]
  - Product quality issue [Unknown]
